FAERS Safety Report 21144255 (Version 1)
Quarter: 2022Q3

REPORT INFORMATION
  Report Type: Spontaneous
  Country: US (occurrence: US)
  Receive Date: 20220728
  Receipt Date: 20220728
  Transmission Date: 20221027
  Serious: Yes (Other)
  Sender: FDA-Public Use
  Company Number: US-NOVARTISPH-NVSC2022US167949

PATIENT
  Age: 68 Year
  Sex: Female

DRUGS (8)
  1. AMOXICILLIN [Suspect]
     Active Substance: AMOXICILLIN
     Indication: Mycobacterium abscessus infection
     Dosage: UNK, TID
     Route: 065
     Dates: start: 202103
  2. AMOXICILLIN [Suspect]
     Active Substance: AMOXICILLIN
     Dosage: UNK, QOD
     Route: 065
  3. IMIPENEM [Suspect]
     Active Substance: IMIPENEM
     Indication: Mycobacterium abscessus infection
     Dosage: UNK UNK, BID
     Route: 065
     Dates: start: 202103
  4. IMIPENEM [Suspect]
     Active Substance: IMIPENEM
     Dosage: UNK, TWICE DAILY QOD
     Route: 065
  5. CILASTATIN [Suspect]
     Active Substance: CILASTATIN
     Indication: Mycobacterium abscessus infection
     Dosage: UNK, BID
     Route: 065
     Dates: start: 202103
  6. CILASTATIN [Suspect]
     Active Substance: CILASTATIN
     Dosage: UNK, TWICE DAILY QOD
     Route: 065
  7. RELEBACTAM [Suspect]
     Active Substance: RELEBACTAM
     Indication: Mycobacterium abscessus infection
     Dosage: UNK, BID
     Route: 065
     Dates: start: 202103
  8. RELEBACTAM [Suspect]
     Active Substance: RELEBACTAM
     Dosage: UNK, TWICE DAILY QOD
     Route: 065

REACTIONS (4)
  - Leukopenia [Unknown]
  - Abdominal pain [Unknown]
  - Diarrhoea [Unknown]
  - Product use in unapproved indication [Unknown]
